FAERS Safety Report 11861396 (Version 1)
Quarter: 2015Q4

REPORT INFORMATION
  Report Type: Spontaneous
  Country: US (occurrence: US)
  Receive Date: 20151222
  Receipt Date: 20151222
  Transmission Date: 20160305
  Serious: No
  Sender: FDA-Public Use
  Company Number: US-AVANIR PHARMACEUTICALS, INC.-2014NUEUSA00281

PATIENT
  Age: 68 Year
  Sex: Female

DRUGS (2)
  1. NUEDEXTA [Suspect]
     Active Substance: DEXTROMETHORPHAN HYDROBROMIDE\QUINIDINE SULFATE
     Indication: DEMENTIA
     Dosage: 1 CAP, QD
     Dates: start: 20140103, end: 20140110
  2. RISPERDAL [Concomitant]
     Active Substance: RISPERIDONE
     Indication: DEMENTIA OF THE ALZHEIMER^S TYPE, WITH DELUSIONS
     Dosage: UNK
     Dates: start: 20140103, end: 20140108

REACTIONS (3)
  - Screaming [Unknown]
  - Aggression [Unknown]
  - Agitation [Unknown]

NARRATIVE: CASE EVENT DATE: 20140104
